FAERS Safety Report 6315886-3 (Version None)
Quarter: 2009Q3

REPORT INFORMATION
  Report Type: 
  Country: None (occurrence: None)
  Receive Date: 20090820
  Receipt Date: 20090813
  Transmission Date: 20100115
  Serious: Yes (Hospitalization, Other)
  Sender: FDA-Public Use
  Company Number: US-ELI_LILLY_AND_COMPANY-US200907001681

PATIENT
  Sex: Female

DRUGS (5)
  1. HUMATROPE [Suspect]
     Indication: HYPOPITUITARISM
  2. TRILEPTAL [Concomitant]
     Indication: CONVULSION
     Dosage: 600 MG, 2/D
  3. GABAPENTIN [Concomitant]
     Indication: CONVULSION
     Dosage: 600 MG, 2/D
  4. LEVOTHYROXINE [Concomitant]
  5. CLONAZEPAM [Concomitant]
     Indication: CONVULSION

REACTIONS (3)
  - CONFUSIONAL STATE [None]
  - CONVULSION [None]
  - FEELING ABNORMAL [None]
